FAERS Safety Report 6330301-1 (Version None)
Quarter: 2009Q3

REPORT INFORMATION
  Report Type: 
  Country: None (occurrence: None)
  Receive Date: 20090827
  Receipt Date: 20090622
  Transmission Date: 20100115
  Serious: No
  Sender: FDA-Public Use
  Company Number: US-KINGPHARMUSA00001-K200900743

PATIENT
  Sex: Female
  Weight: 68.027 kg

DRUGS (9)
  1. FLECTOR [Suspect]
     Indication: ARTHRITIS
     Dosage: 1 PATCH, CUT INTO 3 PIECES, QD
     Route: 061
     Dates: start: 20090601
  2. FLECTOR [Suspect]
     Indication: PAIN
  3. COUMADIN [Concomitant]
     Indication: VEIN DISORDER
     Dosage: UNK
  4. TYLENOL (CAPLET) [Concomitant]
     Indication: PAIN
     Dosage: 1 DF, QHS
     Route: 048
  5. LOPRESSOR [Concomitant]
     Indication: HYPERTENSION
     Dosage: UNK
  6. CRESTOR [Concomitant]
     Dosage: 5 MG, QD
     Route: 048
  7. FOSAMAX [Concomitant]
     Indication: BONE DISORDER
     Dosage: UNK, QW
  8. CELEBREX [Concomitant]
     Indication: ARTHRITIS
     Dosage: UNK
  9. ANTIHYPERTENSIVES [Concomitant]
     Dosage: UNK

REACTIONS (1)
  - DRUG EFFECT DECREASED [None]
